FAERS Safety Report 12131764 (Version 1)
Quarter: 2016Q1

REPORT INFORMATION
  Report Type: Spontaneous
  Country: US (occurrence: US)
  Receive Date: 20160301
  Receipt Date: 20160301
  Transmission Date: 20160526
  Serious: No
  Sender: FDA-Public Use
  Company Number: US-ACTAVIS-2016-02147

PATIENT
  Age: 71 Year
  Sex: Female

DRUGS (4)
  1. ESTRACE [Concomitant]
     Active Substance: ESTRADIOL
     Indication: SJOGREN^S SYNDROME
     Dosage: UNK, UNKNOWN
     Route: 065
  2. CELEBREX [Concomitant]
     Active Substance: CELECOXIB
     Indication: SJOGREN^S SYNDROME
     Dosage: 200 MG, DAILY
     Route: 048
  3. DOXYCYCLINE HYCLATE (ACTAVIS LABORATORIES FL) [Suspect]
     Active Substance: DOXYCYCLINE HYCLATE
     Indication: EYE INFECTION BACTERIAL
     Dosage: 50 MG, BID
     Route: 048
  4. NEXIUM [Concomitant]
     Active Substance: ESOMEPRAZOLE MAGNESIUM
     Indication: PRODUCT USED FOR UNKNOWN INDICATION
     Dosage: 20 MG, DAILY
     Route: 048

REACTIONS (6)
  - Headache [Recovered/Resolved]
  - Vomiting [Recovered/Resolved with Sequelae]
  - Insomnia [Recovered/Resolved]
  - Diarrhoea [Recovered/Resolved]
  - Fatigue [Not Recovered/Not Resolved]
  - Nausea [Not Recovered/Not Resolved]

NARRATIVE: CASE EVENT DATE: 20160125
